FAERS Safety Report 5330011-3 (Version None)
Quarter: 2007Q2

REPORT INFORMATION
  Report Type: 
  Country: None (occurrence: None)
  Receive Date: 20070521
  Receipt Date: 20070514
  Transmission Date: 20071010
  Serious: Yes (Other)
  Sender: FDA-Public Use
  Company Number: B0471260A

PATIENT
  Age: 79 Year
  Sex: Female
  Weight: 50.7 kg

DRUGS (6)
  1. AMOXICILLIN [Suspect]
     Route: 048
     Dates: start: 20070423, end: 20070425
  2. ADCAL [Concomitant]
     Route: 048
  3. ALLOPURINOL [Concomitant]
     Dosage: 100ML THREE TIMES PER DAY
     Route: 048
  4. ASPIRIN [Concomitant]
     Route: 048
  5. CALCICHEW [Concomitant]
     Route: 048
  6. EPOETIN BETA [Concomitant]
     Route: 058

REACTIONS (1)
  - PRURITUS [None]
